FAERS Safety Report 4463550-8 (Version None)
Quarter: 2004Q3

REPORT INFORMATION
  Report Type: 
  Country: None (occurrence: None)
  Receive Date: 20040928
  Receipt Date: 20040910
  Transmission Date: 20050211
  Serious: Yes (Other)
  Sender: FDA-Public Use
  Company Number: B0345407A

PATIENT
  Age: 68 Year
  Sex: Male

DRUGS (4)
  1. ZOVIRAX [Suspect]
     Indication: FACIAL PALSY
     Dosage: 250 MG / THREE TIMES PER DAY/ INTRA
     Dates: start: 20040906, end: 20040909
  2. PREDONINE [Concomitant]
  3. FAMOTIDINE [Concomitant]
  4. BROTIZOLAM [Concomitant]

REACTIONS (2)
  - HALLUCINATION [None]
  - RESTLESSNESS [None]
